FAERS Safety Report 15512158 (Version 1)
Quarter: 2018Q4

REPORT INFORMATION
  Report Type: Spontaneous
  Country: FR (occurrence: FR)
  Receive Date: 20181016
  Receipt Date: 20181016
  Transmission Date: 20190205
  Serious: Yes (Hospitalization, Other)
  Sender: FDA-Public Use
  Company Number: FR-PFM-2018-12380

PATIENT

DRUGS (2)
  1. PROPRANOLOL HYDROCHLORIDE. [Suspect]
     Active Substance: PROPRANOLOL HYDROCHLORIDE
     Indication: PRODUCT USED FOR UNKNOWN INDICATION
     Dosage: 80 MG, DAILY
     Route: 048
     Dates: end: 20180808
  2. DILTIAZEM. [Interacting]
     Active Substance: DILTIAZEM
     Indication: PRODUCT USED FOR UNKNOWN INDICATION
     Dosage: 200 MG, DAILY
     Route: 048
     Dates: start: 201603, end: 20180808

REACTIONS (4)
  - Off label use [Unknown]
  - Atrioventricular block complete [Recovered/Resolved with Sequelae]
  - Product administered to patient of inappropriate age [Unknown]
  - Drug interaction [Unknown]

NARRATIVE: CASE EVENT DATE: 20180808
